FAERS Safety Report 4538593-6 (Version None)
Quarter: 2004Q4

REPORT INFORMATION
  Report Type: 
  Country: None (occurrence: None)
  Receive Date: 20041222
  Receipt Date: 20041213
  Transmission Date: 20050328
  Serious: Yes (Hospitalization, Other)
  Sender: FDA-Public Use
  Company Number: HQWYE945313DEC04

PATIENT
  Age: 79 Year
  Sex: Female

DRUGS (4)
  1. INIPOMP (PANTOPRAZOLE, TABLET, DELAYED RELEASE) [Suspect]
     Dosage: 40 MG SOME TIME (S) ORAL
     Route: 048
     Dates: end: 20040610
  2. PAROXETINE HCL [Suspect]
     Indication: DEPRESSION
     Dosage: SOME TIME (S) 20 MG ORAL
     Route: 048
     Dates: start: 20040529, end: 20040610
  3. XANAX [Suspect]
     Dosage: SOME TIME (S) SOME DF ORAL
     Route: 048
     Dates: end: 20040610
  4. ZESTORETIC [Suspect]
     Indication: ESSENTIAL HYPERTENSION
     Dosage: SOME TIME (S) SOME DF ORAL
     Route: 048
     Dates: end: 20040610

REACTIONS (3)
  - HYPOKALAEMIA [None]
  - HYPONATRAEMIA [None]
  - IMPAIRED SELF-CARE [None]
